FAERS Safety Report 6546581-3 (Version None)
Quarter: 2010Q1

REPORT INFORMATION
  Report Type: 
  Country: None (occurrence: None)
  Receive Date: 20100122
  Receipt Date: 20100114
  Transmission Date: 20100710
  Serious: Yes (Hospitalization, Other)
  Sender: FDA-Public Use
  Company Number: FR-AMGEN-QUU385732

PATIENT
  Sex: Female
  Weight: 66 kg

DRUGS (6)
  1. ARANESP [Suspect]
     Indication: ANAEMIA OF MALIGNANT DISEASE
     Route: 058
     Dates: start: 20090818
  2. GEMCITABINE [Concomitant]
     Route: 042
     Dates: start: 20090818, end: 20091019
  3. OXALIPLATIN [Concomitant]
     Route: 042
     Dates: start: 20090818, end: 20091019
  4. RITUXIMAB [Concomitant]
     Route: 042
     Dates: start: 20090818, end: 20091019
  5. METHYLPREDNISOLONE [Concomitant]
     Route: 042
     Dates: start: 20090818, end: 20091019
  6. LOVENOX [Concomitant]
     Route: 058
     Dates: start: 20090619

REACTIONS (3)
  - ANAEMIA [None]
  - APLASIA PURE RED CELL [None]
  - MYOCARDIAL INFARCTION [None]
